FAERS Safety Report 25118299 (Version 1)
Quarter: 2025Q1

REPORT INFORMATION
  Report Type: Report from Study
  Country: IN (occurrence: IN)
  Receive Date: 20250325
  Receipt Date: 20250325
  Transmission Date: 20250409
  Serious: Yes (Other)
  Sender: ALEXION PHARMACEUTICALS
  Company Number: IN-AstraZeneca-CH-00830656A

PATIENT
  Age: 42 Year
  Weight: 76 kg

DRUGS (2)
  1. OLAPARIB [Suspect]
     Active Substance: OLAPARIB
     Indication: Product used for unknown indication
     Dosage: 300 MILLIGRAM, BID
  2. OLAPARIB [Suspect]
     Active Substance: OLAPARIB
     Dosage: 300 MILLIGRAM, BID
     Route: 065

REACTIONS (12)
  - Immunodeficiency [Recovered/Resolved]
  - Haemoglobin decreased [Recovered/Resolved]
  - White blood cell count decreased [Recovered/Resolved]
  - Gastric infection [Recovered/Resolved]
  - Pigmentation disorder [Recovered/Resolved]
  - Alopecia [Recovered/Resolved]
  - Asthenia [Not Recovered/Not Resolved]
  - Fatigue [Not Recovered/Not Resolved]
  - Anxiety [Not Recovered/Not Resolved]
  - Gastrointestinal disorder [Not Recovered/Not Resolved]
  - Sleep disorder [Not Recovered/Not Resolved]
  - Decreased interest [Not Recovered/Not Resolved]
